FAERS Safety Report 8909429 (Version 1)
Quarter: 2012Q4

REPORT INFORMATION
  Report Type: 
  Country: US (occurrence: US)
  Receive Date: 20121114
  Receipt Date: 20121114
  Transmission Date: 20130627
  Serious: Yes (Hospitalization)
  Sender: FDA-Public Use
  Company Number: US-MYLANLABS-2012S1021259

PATIENT
  Age: 47 Year
  Sex: Female

DRUGS (5)
  1. EMSAM [Suspect]
     Indication: BIPOLAR I DISORDER
     Dosage: q24
     Route: 062
     Dates: start: 201104, end: 201204
  2. EMSAM [Suspect]
     Indication: BIPOLAR I DISORDER
     Dosage: q24
     Route: 062
     Dates: start: 201204, end: 20121024
  3. EMSAM [Suspect]
     Indication: BIPOLAR I DISORDER
     Dosage: q24
     Route: 062
     Dates: start: 201204, end: 201204
  4. DEPAKOTE ER [Concomitant]
     Dosage: No change in neurological symptoms
     Dates: end: 20120717
  5. LAMICTAL [Concomitant]
     Dosage: No change in neurological symptoms
     Route: 048
     Dates: end: 20120904

REACTIONS (5)
  - Suicidal behaviour [Recovered/Resolved]
  - Condition aggravated [Recovered/Resolved]
  - Paraesthesia [Not Recovered/Not Resolved]
  - VIIth nerve paralysis [Recovered/Resolved]
  - Hypoaesthesia [Recovered/Resolved]
